FAERS Safety Report 23765552 (Version 1)
Quarter: 2024Q2

REPORT INFORMATION
  Report Type: Other
  Country: US (occurrence: US)
  Receive Date: 20240420
  Receipt Date: 20240420
  Transmission Date: 20240716
  Serious: Yes (Hospitalization)
  Sender: FDA-Public Use
  Company Number: US-SP-2024-US-38604533

PATIENT
  Age: 33 Year
  Sex: Female

DRUGS (1)
  1. CARBOPROST [Suspect]
     Active Substance: CARBOPROST
     Indication: Uterine leiomyoma
     Dosage: 70 MCG
     Route: 050

REACTIONS (6)
  - Endometritis [Recovering/Resolving]
  - Vaginal haemorrhage [Recovering/Resolving]
  - Haemoglobin decreased [Recovering/Resolving]
  - Pyrexia [Recovering/Resolving]
  - Tachycardia [Recovering/Resolving]
  - Uterine tenderness [Recovering/Resolving]
